FAERS Safety Report 18359089 (Version 1)
Quarter: 2020Q4

REPORT INFORMATION
  Report Type: Spontaneous
  Country: US (occurrence: US)
  Receive Date: 20201008
  Receipt Date: 20201008
  Transmission Date: 20210114
  Serious: No
  Sender: FDA-Public Use
  Company Number: US-INDIVIOR LIMITED-INDV-121748-2019

PATIENT
  Sex: Male

DRUGS (2)
  1. BUPRENORPHINE 8 MG [Suspect]
     Active Substance: BUPRENORPHINE
     Indication: PAIN
     Dosage: 8 MILLIGRAM, TID
     Route: 065
  2. BUPRENORPHINE 8 MG [Suspect]
     Active Substance: BUPRENORPHINE
     Dosage: 8 MILLIGRAM, TID
     Route: 065

REACTIONS (2)
  - Inappropriate schedule of product administration [Unknown]
  - Off label use [Unknown]
